FAERS Safety Report 9394839 (Version 1)
Quarter: 2013Q3

REPORT INFORMATION
  Report Type: Spontaneous
  Country: CH (occurrence: CH)
  Receive Date: 20130711
  Receipt Date: 20130711
  Transmission Date: 20140515
  Serious: Yes (Other)
  Sender: FDA-Public Use
  Company Number: CH-ROCHE-1242167

PATIENT
  Sex: Male

DRUGS (3)
  1. XOLAIR [Suspect]
     Indication: ALLERGY TO ARTHROPOD STING
     Route: 058
     Dates: start: 20130618
  2. XOLAIR [Suspect]
     Indication: SEASONAL ALLERGY
  3. XOLAIR [Suspect]
     Indication: OFF LABEL USE

REACTIONS (1)
  - Anaphylactic reaction [Recovered/Resolved]
